FAERS Safety Report 7078175-8 (Version None)
Quarter: 2010Q4

REPORT INFORMATION
  Report Type: 
  Country: None (occurrence: None)
  Receive Date: 20101101
  Receipt Date: 20101101
  Transmission Date: 20110411
  Serious: Yes (Other)
  Sender: FDA-Public Use
  Company Number: None

PATIENT
  Sex: Female

DRUGS (4)
  1. AXONA (MEDICAL FOOD) [Suspect]
     Dosage: 1 PACKET QD PO
     Route: 048
  2. ARICEPT [Suspect]
  3. NAMENDA [Concomitant]
  4. GLYBURIDE [Concomitant]

REACTIONS (3)
  - BLOOD GLUCOSE INCREASED [None]
  - ERYTHEMA [None]
  - SYNCOPE [None]
